FAERS Safety Report 6030466-5 (Version None)
Quarter: 2009Q1

REPORT INFORMATION
  Report Type: 
  Country: None (occurrence: None)
  Receive Date: 20090106
  Receipt Date: 20090106
  Transmission Date: 20090719
  Serious: Yes (Hospitalization)
  Sender: FDA-Public Use
  Company Number: None

PATIENT
  Age: 83 Year
  Sex: Male
  Weight: 75 kg

DRUGS (1)
  1. NIFEDIPINE [Suspect]
     Indication: ATRIAL FIBRILLATION
     Dosage: 60 MG EVERY DAY PO
     Route: 048
     Dates: start: 19990601, end: 20081230

REACTIONS (3)
  - DYSPNOEA [None]
  - JOINT SWELLING [None]
  - OEDEMA [None]
